FAERS Safety Report 5123481-7 (Version None)
Quarter: 2006Q4

REPORT INFORMATION
  Report Type: 
  Country: None (occurrence: None)
  Receive Date: 20061009
  Receipt Date: 20061009
  Transmission Date: 20070319
  Serious: Yes (Hospitalization)
  Sender: FDA-Public Use
  Company Number: GB-ALLERGAN-0606048US

PATIENT
  Sex: Female

DRUGS (1)
  1. BOTOX 100 UNITS [Suspect]
     Indication: SKIN WRINKLING
     Dosage: UNK, SINGLE
     Route: 030
     Dates: start: 20060601, end: 20060601

REACTIONS (4)
  - DERMATITIS ACNEIFORM [None]
  - JOINT SWELLING [None]
  - PNEUMONIA [None]
  - RASH [None]
